FAERS Safety Report 16115659 (Version 2)
Quarter: 2019Q2

REPORT INFORMATION
  Report Type: Report from Study
  Country: FR (occurrence: FR)
  Receive Date: 20190326
  Receipt Date: 20190531
  Transmission Date: 20190711
  Serious: Yes (Hospitalization)
  Sender: FDA-Public Use
  Company Number: FR-ROCHE-2288922

PATIENT
  Age: 72 Year
  Sex: Female

DRUGS (21)
  1. HYDROCHLOROTHIAZIDE. [Concomitant]
     Active Substance: HYDROCHLOROTHIAZIDE
     Indication: HYPERTENSION
     Route: 048
  2. BACTRIM [Concomitant]
     Active Substance: SULFAMETHOXAZOLE\TRIMETHOPRIM
     Indication: PROPHYLAXIS
     Dosage: 800/160 MG
     Route: 048
     Dates: start: 20181108
  3. EDUCTYL [Concomitant]
     Active Substance: POTASSIUM BITARTRATE\SODIUM BICARBONATE
     Indication: CONSTIPATION
     Dosage: 1.15/0.70 GRAM
     Route: 065
     Dates: start: 20181126
  4. MACROGOL 3350 [Concomitant]
     Active Substance: POLYETHYLENE GLYCOL 3350
     Indication: CONSTIPATION
     Route: 048
     Dates: start: 20181126
  5. FOLINORAL [Concomitant]
     Active Substance: LEUCOVORIN CALCIUM
     Route: 065
     Dates: start: 20181030
  6. CC-122 [Suspect]
     Active Substance: AVADOMIDE
     Dosage: CYCLE 4?DAYS 1 THROUGH 5 ON A 5/7 DAY?LAST DOSE ON 09/FEB/2019 PRIOR TO EVENT
     Route: 048
     Dates: start: 20190121, end: 20190209
  7. CC-122 [Suspect]
     Active Substance: AVADOMIDE
     Dosage: DAYS 1 THROUGH 5 ON A 5/7 DAY
     Route: 048
     Dates: start: 20190213
  8. ADENURIC [Concomitant]
     Active Substance: FEBUXOSTAT
     Route: 065
     Dates: start: 20181108
  9. HYTACAND [Concomitant]
     Active Substance: CANDESARTAN CILEXETIL\HYDROCHLOROTHIAZIDE
     Dosage: 16/12.5 MG
     Route: 065
  10. CC-122 [Suspect]
     Active Substance: AVADOMIDE
     Indication: NON-HODGKIN^S LYMPHOMA
     Dosage: DAYS 1 THROUGH 5 ON A 5/7 DAY?CYCLE 1?LAST DOSE OF ORAL AVADOMIDE 3 MG PRIOR TO SERIOUS ADVERSE EVEN
     Route: 048
     Dates: start: 20181029, end: 20181125
  11. CANDESARTAN. [Concomitant]
     Active Substance: CANDESARTAN
     Indication: HYPERTENSION
     Route: 048
  12. METHYLPREDNISOLONE. [Concomitant]
     Active Substance: METHYLPREDNISOLONE
     Indication: PREMEDICATION
     Route: 042
     Dates: start: 20181030
  13. OBINUTUZUMAB. [Suspect]
     Active Substance: OBINUTUZUMAB
     Indication: NON-HODGKIN^S LYMPHOMA
     Dosage: ON DAYS 2; 8 AND 15 OF A 28-DAY CYCLE?CYCLE 1
     Route: 042
     Dates: start: 20181030, end: 20181030
  14. ATORVASTATIN [Concomitant]
     Active Substance: ATORVASTATIN
     Indication: HYPERCHOLESTEROLAEMIA
     Route: 048
  15. FEBUXOSTAT. [Concomitant]
     Active Substance: FEBUXOSTAT
     Indication: HYPERURICAEMIA
     Route: 048
     Dates: start: 20181108
  16. PARACETAMOL [Concomitant]
     Active Substance: ACETAMINOPHEN
     Indication: PREMEDICATION
     Route: 048
     Dates: start: 20181030
  17. OBINUTUZUMAB. [Suspect]
     Active Substance: OBINUTUZUMAB
     Dosage: CYCLE 4
     Route: 042
     Dates: start: 20190121, end: 20190121
  18. FOLINIC ACID [Concomitant]
     Active Substance: LEUCOVORIN
     Indication: LYMPHOPENIA
     Route: 048
     Dates: start: 20181030
  19. AUGMENTIN [Concomitant]
     Active Substance: AMOXICILLIN\CLAVULANATE POTASSIUM
     Indication: POLLAKIURIA
     Route: 048
     Dates: start: 20190204
  20. DEXCHLORPHENIRAMINE [Concomitant]
     Active Substance: DEXCHLORPHENIRAMINE
     Indication: PREMEDICATION
     Route: 048
     Dates: start: 20181030
  21. VALACYCLOVIR [Concomitant]
     Active Substance: VALACYCLOVIR HYDROCHLORIDE
     Indication: INFECTION PROPHYLAXIS
     Route: 065
     Dates: start: 20181110

REACTIONS (2)
  - Bronchopneumopathy [Recovered/Resolved]
  - Atrial fibrillation [Recovered/Resolved]

NARRATIVE: CASE EVENT DATE: 20190208
